FAERS Safety Report 24758252 (Version 4)
Quarter: 2025Q1

REPORT INFORMATION
  Report Type: Report from Study
  Country: US (occurrence: US)
  Receive Date: 20241220
  Receipt Date: 20250305
  Transmission Date: 20250409
  Serious: Yes (Death, Hospitalization, Other)
  Sender: Unknown Manufacturer
  Company Number: US-MIRUM PHARMACEUTICALS, INC.-US-MIR-23-00229

PATIENT
  Age: 1 Year
  Sex: Female
  Weight: 9.93 kg

DRUGS (8)
  1. LIVMARLI [Suspect]
     Active Substance: MARALIXIBAT CHLORIDE
     Indication: Alagille syndrome
     Dosage: 0.6 MILLILITER, QD
     Dates: start: 202112
  2. LIVMARLI [Suspect]
     Active Substance: MARALIXIBAT CHLORIDE
     Route: 065
     Dates: start: 20230310
  3. OMEPRAZOLE [Concomitant]
     Active Substance: OMEPRAZOLE
     Indication: Product used for unknown indication
     Route: 065
  4. URSODIOL [Concomitant]
     Active Substance: URSODIOL
     Indication: Product used for unknown indication
     Route: 065
  5. RIFAMPIN [Concomitant]
     Active Substance: RIFAMPIN
     Indication: Product used for unknown indication
     Route: 065
  6. VITAMINS NOS [Concomitant]
     Active Substance: VITAMINS
     Indication: Product used for unknown indication
     Route: 065
  7. VITAMIN K [Concomitant]
     Active Substance: PHYTONADIONE
     Indication: Product used for unknown indication
     Route: 065
  8. VITAMIN D NOS [Concomitant]
     Active Substance: CHOLECALCIFEROL\ERGOCALCIFEROL
     Indication: Product used for unknown indication
     Route: 065

REACTIONS (8)
  - Cardiac arrest [Fatal]
  - Respiratory arrest [Fatal]
  - Cardiac failure [Fatal]
  - Post procedural haemorrhage [Fatal]
  - Liver transplant [Unknown]
  - International normalised ratio increased [Not Recovered/Not Resolved]
  - Laboratory test abnormal [Unknown]
  - Off label use [Unknown]

NARRATIVE: CASE EVENT DATE: 20211201
